FAERS Safety Report 23275606 (Version 3)
Quarter: 2024Q2

REPORT INFORMATION
  Report Type: Spontaneous
  Country: CA (occurrence: CA)
  Receive Date: 20231208
  Receipt Date: 20240521
  Transmission Date: 20240715
  Serious: Yes (Hospitalization, Other)
  Sender: FDA-Public Use
  Company Number: None

PATIENT
  Age: 76 Year
  Sex: Male
  Weight: 105 kg

DRUGS (19)
  1. OLANZAPINE [Suspect]
     Active Substance: OLANZAPINE
     Indication: Post-traumatic stress disorder
     Dosage: UNKNOWN
     Dates: start: 2010
  2. OLANZAPINE [Suspect]
     Active Substance: OLANZAPINE
     Indication: Social (pragmatic) communication disorder
     Dosage: UNKNOWN
     Dates: start: 2010
  3. OLANZAPINE [Suspect]
     Active Substance: OLANZAPINE
     Indication: Agitation
     Dosage: UNKNOWN
     Dates: start: 2010
  4. OLANZAPINE [Suspect]
     Active Substance: OLANZAPINE
     Indication: Post-traumatic stress disorder
     Dosage: DAILY DOSE: 2.5 MILLIGRAM
     Route: 048
     Dates: start: 202106, end: 202106
  5. OLANZAPINE [Suspect]
     Active Substance: OLANZAPINE
     Indication: Social (pragmatic) communication disorder
     Dosage: DAILY DOSE: 2.5 MILLIGRAM
     Route: 048
     Dates: start: 202106, end: 202106
  6. OLANZAPINE [Suspect]
     Active Substance: OLANZAPINE
     Indication: Agitation
     Dosage: DAILY DOSE: 2.5 MILLIGRAM
     Route: 048
     Dates: start: 202106, end: 202106
  7. QUETIAPINE [Suspect]
     Active Substance: QUETIAPINE
     Indication: Hallucination, visual
     Dosage: DAILY DOSE: 100 MILLIGRAM
     Dates: start: 202106, end: 202107
  8. QUETIAPINE [Suspect]
     Active Substance: QUETIAPINE
     Indication: Hallucination, visual
     Dosage: 25 MG, BID?DOSE WAS INCREASED ?DAILY DOSE: 50 MILLIGRAM
     Dates: start: 202106, end: 202107
  9. QUETIAPINE [Suspect]
     Active Substance: QUETIAPINE
     Indication: Hallucination, visual
     Dosage: THREE TIMES DAILY?DAILY DOSE: 37.5 MILLIGRAM
     Dates: start: 202106
  10. QUETIAPINE [Suspect]
     Active Substance: QUETIAPINE
     Indication: Hallucination, visual
     Dosage: DAILY DOSE: 12.5 MILLIGRAM
  11. CLONAZEPAM [Suspect]
     Active Substance: CLONAZEPAM
     Dosage: AT BEDTIME?DAILY DOSE: 0.5 MILLIGRAM
  12. RISPERIDONE [Suspect]
     Active Substance: RISPERIDONE
     Indication: Post-traumatic stress disorder
     Dosage: TWICE DAILY?DAILY DOSE: 0.5 MILLIGRAM
     Route: 048
     Dates: start: 202106, end: 202106
  13. RIVASTIGMINE [Suspect]
     Active Substance: RIVASTIGMINE
     Dosage: 1.5 MG, BID?DAILY DOSE: 3 MILLIGRAM
     Dates: start: 202106
  14. RIVASTIGMINE [Suspect]
     Active Substance: RIVASTIGMINE
     Route: 062
  15. CITALOPRAM [Suspect]
     Active Substance: CITALOPRAM\CITALOPRAM HYDROBROMIDE
     Dosage: 20 MG?DAILY DOSE: 20 MILLIGRAM
  16. TRAZODONE [Suspect]
     Active Substance: TRAZODONE HYDROCHLORIDE
     Dosage: TRAZODONE TITRATION?DAILY DOSE: 100 MILLIGRAM
     Dates: start: 202106
  17. TRAZODONE [Suspect]
     Active Substance: TRAZODONE HYDROCHLORIDE
     Dosage: TRAZODONE TITRATION?DAILY DOSE: 50 MILLIGRAM
     Dates: start: 202106
  18. TRAZODONE [Suspect]
     Active Substance: TRAZODONE HYDROCHLORIDE
     Dosage: TRAZODONE TITRATION?DAILY DOSE: 25 MILLIGRAM
     Dates: start: 202106
  19. TRAZODONE [Suspect]
     Active Substance: TRAZODONE HYDROCHLORIDE
     Dosage: 3 TIMES PER DAY?DAILY DOSE: 150 MILLIGRAM
     Dates: start: 202107

REACTIONS (2)
  - Parkinsonism [Recovering/Resolving]
  - Off label use [Unknown]

NARRATIVE: CASE EVENT DATE: 20210601
